FAERS Safety Report 10356786 (Version 2)
Quarter: 2014Q3

REPORT INFORMATION
  Report Type: Spontaneous
  Country: ES (occurrence: ES)
  Receive Date: 20140801
  Receipt Date: 20140820
  Transmission Date: 20150326
  Serious: Yes (Other)
  Sender: FDA-Public Use
  Company Number: ES-EISAI INC-E2007-01825-SPO-ES

PATIENT
  Age: 45 Year
  Sex: Male

DRUGS (8)
  1. FYCOMPA [Suspect]
     Active Substance: PERAMPANEL
     Indication: PARTIAL SEIZURES
     Dosage: DOSE UNKNOWN (TITRATION UP)
     Route: 048
     Dates: end: 20140609
  2. FYCOMPA [Suspect]
     Active Substance: PERAMPANEL
     Dosage: 4 MG/DAY
     Route: 048
     Dates: start: 20140715, end: 201407
  3. NEURALEX [Concomitant]
     Indication: AMNESIA
     Dosage: UNKNOWN
     Route: 048
  4. FYCOMPA [Suspect]
     Active Substance: PERAMPANEL
     Dosage: TITRATED DOWN
     Route: 048
     Dates: start: 201407, end: 20140730
  5. RIVOTRIL [Concomitant]
     Active Substance: CLONAZEPAM
     Indication: EPILEPSY
     Dosage: UNKNOWN
     Route: 048
  6. FYCOMPA [Suspect]
     Active Substance: PERAMPANEL
     Dosage: 6 MG/DAY
     Route: 048
     Dates: start: 20140610, end: 20140714
  7. CLONAZEPAM. [Concomitant]
     Active Substance: CLONAZEPAM
     Indication: PRODUCT USED FOR UNKNOWN INDICATION
     Dates: start: 20140715
  8. ZONEGRAN [Concomitant]
     Active Substance: ZONISAMIDE
     Indication: PARTIAL SEIZURES
     Dosage: 400 MG/DAY
     Route: 048
     Dates: start: 201309

REACTIONS (6)
  - Thinking abnormal [None]
  - Aggression [None]
  - Mania [None]
  - Delusion of grandeur [None]
  - Acute psychosis [Recovered/Resolved]
  - Delirium [None]

NARRATIVE: CASE EVENT DATE: 20140704
